FAERS Safety Report 14873857 (Version 3)
Quarter: 2018Q3

REPORT INFORMATION
  Report Type: Report from Study
  Country: DE (occurrence: DE)
  Receive Date: 20180510
  Receipt Date: 20180724
  Transmission Date: 20181010
  Serious: Yes (Hospitalization, Other)
  Sender: FDA-Public Use
  Company Number: DE-SA-2018SA129857

PATIENT
  Age: 44 Year
  Sex: Female

DRUGS (1)
  1. ALEMTUZUMAB [Suspect]
     Active Substance: ALEMTUZUMAB
     Indication: MULTIPLE SCLEROSIS
     Dosage: 12 MG,UNK
     Route: 041
     Dates: start: 20180206, end: 20180210

REACTIONS (13)
  - Dyspnoea exertional [Recovering/Resolving]
  - Urticaria [Recovered/Resolved]
  - Nasopharyngitis [Recovering/Resolving]
  - Dizziness [Unknown]
  - Influenza [Recovering/Resolving]
  - Asthenia [Not Recovered/Not Resolved]
  - Red blood cell count increased [Unknown]
  - Leukopenia [Recovering/Resolving]
  - Rash [Recovered/Resolved]
  - Cough [Recovering/Resolving]
  - Bronchitis [Unknown]
  - Neutropenia [Unknown]
  - Lymphocyte count decreased [Recovering/Resolving]

NARRATIVE: CASE EVENT DATE: 2018
